FAERS Safety Report 4824448-6 (Version None)
Quarter: 2005Q4

REPORT INFORMATION
  Report Type: 
  Country: None (occurrence: None)
  Receive Date: 20051108
  Receipt Date: 20051102
  Transmission Date: 20060501
  Serious: Yes (Hospitalization)
  Sender: FDA-Public Use
  Company Number: 200513991BCC

PATIENT
  Age: 74 Year
  Sex: Female
  Weight: 63.5036 kg

DRUGS (4)
  1. ASPIRIN [Suspect]
     Dosage: 325 MG, OM, ORAL
     Route: 048
     Dates: start: 20030101
  2. ONE A DAY WOMEN'S [Suspect]
     Indication: VITAMIN SUPPLEMENTATION
     Dosage: OM, ORAL
     Route: 048
     Dates: start: 20050901
  3. OSCAL [Concomitant]
  4. PRINZIDE [Concomitant]

REACTIONS (4)
  - CEREBROVASCULAR ACCIDENT [None]
  - DISORIENTATION [None]
  - HYPERTENSION [None]
  - TRANSIENT ISCHAEMIC ATTACK [None]
